FAERS Safety Report 20823336 (Version 5)
Quarter: 2022Q3

REPORT INFORMATION
  Report Type: Spontaneous
  Country: US (occurrence: US)
  Receive Date: 20220513
  Receipt Date: 20220923
  Transmission Date: 20221027
  Serious: No
  Sender: FDA-Public Use
  Company Number: US-SANOFI-01089563

PATIENT
  Age: 34 Year
  Sex: Female
  Weight: 70.3 kg

DRUGS (1)
  1. FERRLECIT [Suspect]
     Active Substance: SODIUM FERRIC GLUCONATE COMPLEX
     Indication: Iron deficiency anaemia
     Dosage: 125 MG, BID
     Dates: start: 20220425, end: 20220502

REACTIONS (5)
  - Oedema peripheral [Unknown]
  - Infusion related reaction [Not Recovered/Not Resolved]
  - Back pain [Unknown]
  - Dizziness [Unknown]
  - Hypersensitivity [Unknown]

NARRATIVE: CASE EVENT DATE: 20220502
